FAERS Safety Report 5079080-9 (Version None)
Quarter: 2006Q3

REPORT INFORMATION
  Report Type: 
  Country: None (occurrence: None)
  Receive Date: 20060808
  Receipt Date: 20060726
  Transmission Date: 20061208
  Serious: Yes (Hospitalization, Other)
  Sender: FDA-Public Use
  Company Number: 2006092821

PATIENT
  Age: 43 Year
  Sex: Female
  Weight: 88.905 kg

DRUGS (7)
  1. DILANTIN [Suspect]
     Indication: CONVULSION
  2. DILANTIN KAPSEAL [Suspect]
     Indication: CONVULSION
     Dosage: 300 MG
  3. MULTIVITAMIN [Concomitant]
  4. CALCIUM GLUCONATE [Concomitant]
  5. DRISDOL [Concomitant]
  6. FOSAMAX [Concomitant]
  7. PHENOBARBITAL TAB [Concomitant]

REACTIONS (8)
  - ABSCESS [None]
  - CONDITION AGGRAVATED [None]
  - CONVULSION [None]
  - DRUG LEVEL DECREASED [None]
  - INSOMNIA [None]
  - MULTIPLE ALLERGIES [None]
  - PHARMACEUTICAL PRODUCT COUNTERFEIT [None]
  - SEASONAL ALLERGY [None]
